FAERS Safety Report 15599695 (Version 1)
Quarter: 2018Q4

REPORT INFORMATION
  Report Type: Spontaneous
  Country: FR (occurrence: FR)
  Receive Date: 20181108
  Receipt Date: 20181108
  Transmission Date: 20190205
  Serious: Yes (Hospitalization, Other)
  Sender: FDA-Public Use
  Company Number: FR-SEATTLE GENETICS-2018SGN02865

PATIENT
  Age: 67 Year
  Sex: Male
  Weight: 104 kg

DRUGS (16)
  1. FILGRASTIM [Concomitant]
     Active Substance: FILGRASTIM
     Dosage: UNK
     Route: 065
  2. AMLODIPINE BESILATE, PERINDOPRIL ARGININE [Suspect]
     Active Substance: AMLODIPINE BESYLATE\PERINDOPRIL ARGININE
     Indication: HYPERTENSION
     Dosage: 1 DF, UNK
     Route: 048
     Dates: end: 20180730
  3. HYDROCHLOROTHIAZIDE, NEBIVOLOL HYDROCHLORIDE [Concomitant]
     Dosage: UNK
     Route: 065
  4. ACETYLSALICYLIC ACID, CLOPIDOGREL BISULFATE [Concomitant]
     Dosage: UNK
     Route: 065
  5. METHYLPREDNISOLONE SODIUM SUCCINATE. [Suspect]
     Active Substance: METHYLPREDNISOLONE SODIUM SUCCINATE
     Indication: PROPHYLAXIS
     Dosage: 80 MG, UNK
     Route: 042
     Dates: start: 20180730, end: 20180730
  6. DEXCHLORPHENIRAMINE MALEATE. [Suspect]
     Active Substance: DEXCHLORPHENIRAMINE MALEATE
     Indication: PROPHYLAXIS
     Dosage: 1 DF, UNK
     Route: 042
     Dates: start: 20180730, end: 20180730
  7. ADCETRIS [Suspect]
     Active Substance: BRENTUXIMAB VEDOTIN
     Indication: HODGKIN^S DISEASE
     Dosage: 180 MG, UNK
     Route: 042
     Dates: start: 20180730, end: 20180730
  8. ALLOPURINOL. [Concomitant]
     Active Substance: ALLOPURINOL
     Dosage: UNK
     Route: 065
  9. BENDAMUSTINE HYDROCHLORIDE. [Suspect]
     Active Substance: BENDAMUSTINE HYDROCHLORIDE
     Indication: HODGKIN^S DISEASE
     Dosage: 260 MG, UNK
     Route: 042
     Dates: start: 20180730, end: 20180730
  10. PARACETAMOL [Suspect]
     Active Substance: ACETAMINOPHEN
     Indication: PROPHYLAXIS
     Dosage: 1 G, UNK
     Route: 042
     Dates: start: 20180730, end: 20180730
  11. IVABRADINE HYDROCHLORIDE [Concomitant]
     Active Substance: IVABRADINE HYDROCHLORIDE
     Dosage: UNK
     Route: 065
  12. SULFAMETHOXAZOLE, TRIMETHOPRIM [Concomitant]
     Active Substance: SULFAMETHOXAZOLE\TRIMETHOPRIM
     Dosage: UNK
     Route: 065
  13. METFORMIN HYDROCHLORIDE. [Concomitant]
     Active Substance: METFORMIN HYDROCHLORIDE
     Dosage: UNK
     Route: 065
  14. DULAGLUTIDE. [Concomitant]
     Active Substance: DULAGLUTIDE
     Dosage: UNK
     Route: 065
  15. VALACICLOVIR HYDROCHLORIDE [Concomitant]
     Active Substance: VALACYCLOVIR HYDROCHLORIDE
     Dosage: UNK
     Route: 065
  16. INSULIN GLARGINE [Concomitant]
     Active Substance: INSULIN GLARGINE
     Dosage: UNK
     Route: 065

REACTIONS (3)
  - Acute kidney injury [Recovered/Resolved]
  - Malaise [Recovered/Resolved]
  - Hyperthermia [Recovered/Resolved]

NARRATIVE: CASE EVENT DATE: 20180730
